FAERS Safety Report 10109928 (Version 1)
Quarter: 2014Q2

REPORT INFORMATION
  Report Type: Spontaneous
  Country: US (occurrence: None)
  Receive Date: 20140423
  Receipt Date: 20140423
  Transmission Date: 20141212
  Serious: Yes (Other)
  Sender: FDA-Public Use
  Company Number: 2014AP002622

PATIENT
  Sex: Male

DRUGS (2)
  1. ALENDRONATE SODIUM [Suspect]
     Indication: OSTEOPOROSIS
  2. FOSAMAX [Suspect]

REACTIONS (10)
  - Anxiety [None]
  - Femur fracture [None]
  - Quality of life decreased [None]
  - Bone disorder [None]
  - Multiple injuries [None]
  - Emotional distress [None]
  - Fear of disease [None]
  - Stress fracture [None]
  - Pain [None]
  - Mental disorder [None]
